FAERS Safety Report 21064345 (Version 2)
Quarter: 2023Q1

REPORT INFORMATION
  Report Type: Report from Study
  Country: FR (occurrence: FR)
  Receive Date: 20220711
  Receipt Date: 20230124
  Transmission Date: 20230417
  Serious: Yes (Hospitalization, Other)
  Sender: FDA-Public Use
  Company Number: FR-SERVIER-S21009144

PATIENT

DRUGS (9)
  1. PEGASPARGASE [Suspect]
     Active Substance: PEGASPARGASE
     Indication: Acute lymphocytic leukaemia
     Dosage: 1800 IU ON D12 AND D26
     Route: 042
     Dates: start: 20210531, end: 20210626
  2. VINCRISTINE [Suspect]
     Active Substance: VINCRISTINE
     Indication: Acute lymphocytic leukaemia
     Dosage: 1.1 MG ON D8, D15, D22, AND D29
     Route: 042
     Dates: start: 20210526, end: 20210616
  3. DAUNORUBICIN [Suspect]
     Active Substance: DAUNORUBICIN
     Indication: Acute lymphocytic leukaemia
     Dosage: 29 MG ON D8, D15, D22, D29
     Route: 042
     Dates: start: 20210526, end: 20210616
  4. METHOTREXATE [Suspect]
     Active Substance: METHOTREXATE
     Indication: Acute lymphocytic leukaemia
     Dosage: 12 MG ON D1, D13, D24
     Route: 037
     Dates: start: 20210522, end: 20210611
  5. CYTARABINE [Suspect]
     Active Substance: CYTARABINE
     Indication: Acute lymphocytic leukaemia
     Dosage: 30 MG ON D13 AND D24
     Route: 037
     Dates: start: 20210531, end: 20210611
  6. HYDROCORTISONE [Suspect]
     Active Substance: HYDROCORTISONE
     Indication: Acute lymphocytic leukaemia
     Dosage: 15 MG ON D13 AND D24
     Route: 037
     Dates: start: 20210531, end: 20210611
  7. CYCLOPHOSPHAMIDE [Suspect]
     Active Substance: CYCLOPHOSPHAMIDE
     Indication: Acute lymphocytic leukaemia
     Dosage: 720 MG ON D9
     Route: 042
     Dates: start: 20210527, end: 20210527
  8. PREDNISOLONE [Suspect]
     Active Substance: PREDNISOLONE
     Indication: Acute lymphocytic leukaemia
     Dosage: 42.6 MG ON D8 TO D29
     Route: 048
     Dates: start: 20210526, end: 20210616
  9. PREDNISONE [Suspect]
     Active Substance: PREDNISONE
     Indication: Acute lymphocytic leukaemia
     Dosage: 40 MG, D1 TO D7
     Route: 048
     Dates: start: 20210519, end: 20210525

REACTIONS (3)
  - Pancreatitis acute [Recovering/Resolving]
  - Febrile bone marrow aplasia [Recovering/Resolving]
  - Hyperbilirubinaemia [Recovered/Resolved]

NARRATIVE: CASE EVENT DATE: 20210607
